FAERS Safety Report 9862446 (Version 4)
Quarter: 2014Q2

REPORT INFORMATION
  Report Type: Spontaneous
  Country: US (occurrence: US)
  Receive Date: 20140203
  Receipt Date: 20140515
  Transmission Date: 20141212
  Serious: Yes (Death, Hospitalization)
  Sender: FDA-Public Use
  Company Number: US-INCYTE CORPORATION-2014IN000225

PATIENT
  Age: 69 Year
  Sex: Male

DRUGS (22)
  1. JAKAFI [Suspect]
     Indication: MYELOFIBROSIS
     Dosage: 5 MG, BID
     Route: 048
     Dates: start: 201210
  2. JAKAFI [Suspect]
     Indication: SPLENOMEGALY
     Dosage: 15 MG, BID
     Route: 048
  3. JAKAFI [Suspect]
     Indication: POLYCYTHAEMIA
  4. FERROUS SULFATE [Concomitant]
  5. LASIX                              /00032601/ [Concomitant]
  6. ZYPREXA [Concomitant]
     Dosage: 5 MG, HS
  7. POTASSIUM CHLORIDE [Concomitant]
  8. FLOMAX                             /00889901/ [Concomitant]
     Dosage: 0.4 MG, QD
  9. DEPAKENE                           /00228501/ [Concomitant]
     Dosage: 250 MG, UNK
  10. URECHOLINE [Concomitant]
  11. LOPRESSOR [Concomitant]
  12. VENTOLIN                           /00139501/ [Concomitant]
  13. VANCOMYCIN [Concomitant]
     Route: 042
  14. ALLOPURINOL [Concomitant]
     Dosage: 300 MG, QD
  15. ALBUTEROL                          /00139501/ [Concomitant]
  16. BETHANECHOL [Concomitant]
     Dosage: 25 MG, TID
     Route: 065
  17. DILTIAZEM [Concomitant]
     Dosage: 30 MG, FOUR TIMES A DAY PER BP READINGS
     Route: 065
  18. METOPROLOL [Concomitant]
     Dosage: 50 MG, BID
     Route: 065
  19. POTASSIUM CITRATE [Concomitant]
  20. TAMSULOSIN [Concomitant]
  21. BETA GLUCAN [Concomitant]
  22. DEPAKOTE [Concomitant]

REACTIONS (4)
  - Death [Fatal]
  - Pneumonia [Recovering/Resolving]
  - Dehydration [Not Recovered/Not Resolved]
  - Urinary tract infection [Not Recovered/Not Resolved]
